FAERS Safety Report 8081146-6 (Version None)
Quarter: 2012Q1

REPORT INFORMATION
  Report Type: 
  Country: None (occurrence: None)
  Receive Date: 20120130
  Receipt Date: 20120120
  Transmission Date: 20120608
  Serious: Yes (Hospitalization)
  Sender: FDA-Public Use
  Company Number: CA-GLAXOSMITHKLINE-A0962260A

PATIENT
  Sex: Female
  Weight: 59.1 kg

DRUGS (5)
  1. ADVAIR DISKUS 100/50 [Suspect]
     Indication: ASTHMA
     Dosage: 1PUFF TWICE PER DAY
     Route: 055
     Dates: start: 20090101
  2. VENTOLIN [Concomitant]
     Dosage: 2PUFF FOUR TIMES PER DAY
     Route: 055
  3. SPIRIVA [Concomitant]
     Route: 065
  4. DOMPERIDONE [Concomitant]
     Indication: HIATUS HERNIA
     Route: 065
  5. FLONASE [Concomitant]
     Route: 065

REACTIONS (2)
  - OXYGEN SATURATION DECREASED [None]
  - DYSPNOEA [None]
